FAERS Safety Report 8081129-6 (Version None)
Quarter: 2012Q1

REPORT INFORMATION
  Report Type: 
  Country: None (occurrence: None)
  Receive Date: 20120130
  Receipt Date: 20120120
  Transmission Date: 20120608
  Serious: Yes (Other)
  Sender: FDA-Public Use
  Company Number: US-GLAXOSMITHKLINE-A0898284A

PATIENT
  Age: 57 Year
  Sex: Female

DRUGS (4)
  1. ZOCOR [Concomitant]
  2. AVANDIA [Suspect]
     Indication: DIABETES MELLITUS
     Dosage: 8MG PER DAY
     Route: 048
     Dates: start: 20040101, end: 20070416
  3. ASPIRIN [Concomitant]
  4. METFFORMIN HYDROCHLORIDE [Concomitant]

REACTIONS (2)
  - RETINAL VEIN OCCLUSION [None]
  - OPTIC ISCHAEMIC NEUROPATHY [None]
